FAERS Safety Report 18475110 (Version 1)
Quarter: 2020Q4

REPORT INFORMATION
  Report Type: Spontaneous
  Country: US (occurrence: US)
  Receive Date: 20201106
  Receipt Date: 20201106
  Transmission Date: 20210114
  Serious: No
  Sender: FDA-Public Use
  Company Number: US-009507513-2010USA008394

PATIENT
  Age: 37 Year
  Sex: Male

DRUGS (4)
  1. THERAPEUTIC RADIOPHARMACEUTICAL (UNSPECIFIED) [Concomitant]
     Active Substance: UNSPECIFIED INGREDIENT
     Indication: ANAPLASTIC ASTROCYTOMA
     Dosage: 59.4 GY
  2. TEMODAR [Suspect]
     Active Substance: TEMOZOLOMIDE
     Indication: ANAPLASTIC ASTROCYTOMA
  3. THERAPEUTIC RADIOPHARMACEUTICAL (UNSPECIFIED) [Concomitant]
     Active Substance: UNSPECIFIED INGREDIENT
     Indication: NEUROFIBROMATOSIS
  4. TEMODAR [Suspect]
     Active Substance: TEMOZOLOMIDE
     Indication: NEUROFIBROMATOSIS

REACTIONS (1)
  - Product use in unapproved indication [Unknown]
